FAERS Safety Report 9126792 (Version 2)
Quarter: 2013Q2

REPORT INFORMATION
  Report Type: Spontaneous
  Country: US (occurrence: US)
  Receive Date: 20130122
  Receipt Date: 20130510
  Transmission Date: 20140414
  Serious: Yes (Hospitalization)
  Sender: FDA-Public Use
  Company Number: US-BAYER-2013-007939

PATIENT
  Age: 30 Year
  Sex: Female
  Weight: 99.77 kg

DRUGS (10)
  1. BEYAZ [Suspect]
     Indication: CONTRACEPTION
     Dosage: UNK
     Dates: start: 2010, end: 2012
  2. BEYAZ [Suspect]
     Indication: ACNE
     Dosage: UNK
     Dates: start: 2010, end: 2012
  3. YAZ [Suspect]
     Indication: CONTRACEPTION
     Dosage: UNK
     Dates: start: 2007, end: 201208
  4. YAZ [Suspect]
     Indication: ACNE
  5. SYNTHROID [Concomitant]
     Indication: HYPOTHYROIDISM
     Dosage: 75 MCG/24HR,ONE TAB DAILY
     Route: 048
  6. FLUOXETINE [Concomitant]
     Indication: PANIC ATTACK
     Dosage: 40 MG, UNK
     Route: 048
  7. PROAIR HFA [Concomitant]
     Indication: ASTHMA
     Route: 045
  8. LEVOTHYROXINE [Concomitant]
  9. NAPROXEN [Concomitant]
  10. NORCO [Concomitant]
     Indication: PAIN

REACTIONS (4)
  - Pulmonary embolism [None]
  - Injury [None]
  - Pain [None]
  - Pain [None]
